FAERS Safety Report 5885519-9 (Version None)
Quarter: 2008Q3

REPORT INFORMATION
  Report Type: 
  Country: None (occurrence: None)
  Receive Date: 20080916
  Receipt Date: 20080910
  Transmission Date: 20090109
  Serious: Yes (Other)
  Sender: FDA-Public Use
  Company Number: US-ABBOTT-08P-163-0475685-00

PATIENT
  Sex: Female
  Weight: 97.61 kg

DRUGS (14)
  1. HUMIRA [Suspect]
     Indication: RHEUMATOID ARTHRITIS
     Route: 058
     Dates: start: 20080513
  2. FOLIC ACID [Concomitant]
     Indication: RHEUMATOID ARTHRITIS
     Route: 048
     Dates: start: 20080101
  3. METHOTREXATE [Concomitant]
     Indication: RHEUMATOID ARTHRITIS
     Route: 048
     Dates: start: 20080101
  4. PREDNISONE TAB [Concomitant]
     Indication: RHEUMATOID ARTHRITIS
     Route: 048
     Dates: start: 20080101
  5. ACETAMINOPHEN W/ PROPOXYPHENE HCL [Concomitant]
     Indication: PAIN
     Dosage: 1-2 TABS Q 6 HRS PRN
     Route: 048
     Dates: start: 20080701
  6. TUSSIN DM [Concomitant]
     Indication: COUGH
     Route: 048
     Dates: start: 20080701
  7. FLUTICASONE PROPIONATE [Concomitant]
     Indication: SINUS CONGESTION
     Route: 045
     Dates: start: 20080701
  8. ZOLPIDEM TARTRATE [Concomitant]
     Indication: INSOMNIA
     Route: 048
     Dates: start: 20080601
  9. NEILMED [Concomitant]
     Indication: SINUS CONGESTION
     Dosage: RINSE QD
     Route: 045
     Dates: start: 20080701
  10. ADVAIR DISKUS 100/50 [Concomitant]
     Indication: CHRONIC OBSTRUCTIVE PULMONARY DISEASE
     Dosage: 2 SPRAYS DAILY
     Route: 045
     Dates: start: 20080701
  11. ALENDRONATE SODIUM [Concomitant]
     Indication: BONE DISORDER
     Route: 048
     Dates: start: 20080701
  12. CALCIUM [Concomitant]
     Indication: BONE DISORDER
     Route: 048
     Dates: start: 20080701
  13. ALBUTEROL SPIROS [Concomitant]
     Indication: CHRONIC OBSTRUCTIVE PULMONARY DISEASE
     Route: 045
     Dates: start: 20080901
  14. ESCITALOPRAM OXALATE [Concomitant]
     Indication: DEPRESSION
     Route: 048
     Dates: start: 20080501

REACTIONS (2)
  - ABDOMINAL PAIN [None]
  - SINUS OPERATION [None]
